FAERS Safety Report 9296261 (Version 1)
Quarter: 2013Q2

REPORT INFORMATION
  Report Type: Spontaneous
  Country: FR (occurrence: FR)
  Receive Date: 20130517
  Receipt Date: 20130517
  Transmission Date: 20140414
  Serious: Yes (Death, Hospitalization, Other)
  Sender: FDA-Public Use
  Company Number: FR-ELI_LILLY_AND_COMPANY-FR201205001485

PATIENT
  Age: 59 Year
  Sex: Male

DRUGS (17)
  1. CARBOPLATIN [Concomitant]
     Indication: LUNG ADENOCARCINOMA
     Dosage: UNK
     Route: 042
     Dates: start: 20111209, end: 20111230
  2. OXYCONTIN [Concomitant]
  3. KARDEGIC [Concomitant]
  4. METOPROLOL [Concomitant]
  5. PANTOPRAZOLE [Concomitant]
  6. TAHOR [Concomitant]
  7. ATARAX [Concomitant]
  8. FORLAX [Concomitant]
  9. DIPROSONE [Concomitant]
  10. EPREX [Concomitant]
     Dosage: 60000 IU, WEEKLY (1/W)
     Dates: start: 20120622, end: 20120720
  11. ALIMTA [Suspect]
     Indication: LUNG ADENOCARCINOMA
     Dosage: 500 MG, UNKNOWN
     Route: 042
     Dates: start: 20111209, end: 20120524
  12. ALIMTA [Suspect]
     Dosage: UNK, UNKNOWN
     Dates: start: 20120525
  13. ALIMTA [Suspect]
     Dosage: UNK
     Dates: start: 20120525
  14. ALIMTA [Suspect]
     Dosage: UNK
     Dates: start: 20120622
  15. ALIMTA [Suspect]
     Dosage: UNK
     Dates: start: 20120720, end: 20120831
  16. ALIMTA [Suspect]
     Dosage: UNK
     Dates: start: 20120810
  17. ALIMTA [Suspect]
     Dosage: UNK
     Dates: start: 20120831

REACTIONS (10)
  - Death [Fatal]
  - Respiratory failure [Unknown]
  - Lung infection [Unknown]
  - Increased bronchial secretion [Unknown]
  - General physical health deterioration [Unknown]
  - Thrombocytopenia [Not Recovered/Not Resolved]
  - Anaemia [Not Recovered/Not Resolved]
  - Haematotoxicity [Recovered/Resolved]
  - Asthenia [Not Recovered/Not Resolved]
  - Decreased appetite [Not Recovered/Not Resolved]
